FAERS Safety Report 17679179 (Version 1)
Quarter: 2020Q2

REPORT INFORMATION
  Report Type: Spontaneous
  Country: US (occurrence: US)
  Receive Date: 20200417
  Receipt Date: 20200417
  Transmission Date: 20200714
  Serious: No
  Sender: FDA-Public Use
  Company Number: US-CELGENEUS-USA-20200404116

PATIENT
  Sex: Male
  Weight: 83.08 kg

DRUGS (2)
  1. IDHIFA [Suspect]
     Active Substance: ENASIDENIB MESYLATE
     Indication: OFF LABEL USE
  2. IDHIFA [Suspect]
     Active Substance: ENASIDENIB MESYLATE
     Indication: MYELODYSPLASTIC SYNDROME
     Dosage: 100 MILLIGRAM
     Route: 048
     Dates: start: 20200328

REACTIONS (4)
  - Constipation [Recovering/Resolving]
  - Fatigue [Recovering/Resolving]
  - Haemoglobin decreased [Recovering/Resolving]
  - Appetite disorder [Recovering/Resolving]

NARRATIVE: CASE EVENT DATE: 2020
